FAERS Safety Report 8909328 (Version 4)
Quarter: 2013Q3

REPORT INFORMATION
  Report Type: Spontaneous
  Country: US (occurrence: US)
  Receive Date: 20121115
  Receipt Date: 20130705
  Transmission Date: 20140515
  Serious: Yes (Hospitalization, Disabling, Other)
  Sender: FDA-Public Use
  Company Number: US-009507513-1205USA04573

PATIENT
  Sex: Female

DRUGS (19)
  1. FOSAMAX [Suspect]
     Indication: OSTEOPOROSIS
     Dosage: 70 MG, UNK
     Route: 048
     Dates: start: 20040907, end: 2009
  2. FOSAMAX [Suspect]
     Indication: OSTEOPENIA
  3. FOSAMAX [Suspect]
     Indication: MUSCULAR DYSTROPHY
  4. ALENDRONATE SODIUM [Suspect]
     Indication: OSTEOPOROSIS
     Dosage: 70 MG, UNK
     Route: 048
  5. ALENDRONATE SODIUM [Suspect]
     Indication: OSTEOPENIA
  6. ALENDRONATE SODIUM [Suspect]
     Indication: MUSCULAR DYSTROPHY
  7. PRILOSEC [Concomitant]
     Indication: ULCER
     Dosage: UNK
     Dates: start: 2000
  8. OMEPRAZOLE [Concomitant]
     Indication: GASTROOESOPHAGEAL REFLUX DISEASE
     Dosage: UNK
     Dates: start: 2002, end: 2012
  9. FLONASE [Concomitant]
     Dosage: UNK
     Route: 045
     Dates: start: 2001
  10. ESTROSTEP FE [Concomitant]
     Dosage: UNK
     Dates: start: 2002, end: 2008
  11. ZITHROMAX [Concomitant]
     Dosage: UNK
     Dates: start: 2000, end: 2005
  12. CLARINEX [Concomitant]
     Dosage: UNK
     Route: 048
     Dates: start: 2002
  13. METROGEL-VAGINAL [Concomitant]
     Indication: VAGINAL INFECTION
     Dosage: UNK
     Dates: start: 2000, end: 2006
  14. HYDROCODONE [Concomitant]
     Indication: PAIN
     Dosage: UNK
     Dates: start: 2001, end: 2006
  15. ZYRTEC [Concomitant]
     Dosage: UNK
     Dates: start: 2000, end: 2008
  16. AMOXICILLIN [Concomitant]
     Dosage: UNK
     Dates: start: 2003, end: 2008
  17. SYNTHROID [Concomitant]
     Indication: HYPOTHYROIDISM
     Dosage: UNK
     Dates: start: 2002, end: 2012
  18. LEVOTHYROXINE SODIUM [Concomitant]
     Indication: HYPOTHYROIDISM
     Dosage: UNK
     Dates: start: 2005, end: 2011
  19. PREDNISONE [Concomitant]
     Dosage: UNK
     Dates: start: 2004, end: 2007

REACTIONS (22)
  - Intramedullary rod insertion [Unknown]
  - Cholecystectomy [Unknown]
  - Osteoporosis [Unknown]
  - Depression [Recovering/Resolving]
  - Low turnover osteopathy [Unknown]
  - Procedural nausea [Recovered/Resolved]
  - Escherichia urinary tract infection [Unknown]
  - Femur fracture [Recovering/Resolving]
  - Platelet count increased [Unknown]
  - Scoliosis [Unknown]
  - Sinusitis [Unknown]
  - Temporomandibular joint syndrome [Unknown]
  - Inflammation [Unknown]
  - Bacterial infection [Unknown]
  - Cough [Unknown]
  - Blood cholesterol increased [Unknown]
  - Bacterial infection [Unknown]
  - Acne [Unknown]
  - Anxiety [Unknown]
  - Cough [Unknown]
  - Off label use [Unknown]
  - Muscle spasms [Unknown]
